FAERS Safety Report 8475133-3 (Version None)
Quarter: 2012Q2

REPORT INFORMATION
  Report Type: 
  Country: None (occurrence: None)
  Receive Date: 20120628
  Receipt Date: 20120622
  Transmission Date: 20120825
  Serious: Yes (Other)
  Sender: FDA-Public Use
  Company Number: US-PFIZER INC-2012058366

PATIENT
  Sex: Male

DRUGS (14)
  1. ZOCOR [Suspect]
     Dosage: UNK
  2. JANUVIA [Concomitant]
     Indication: DIABETES MELLITUS
     Dosage: 100 MG, 1X/DAY
     Dates: start: 20110101
  3. TOPROL-XL [Concomitant]
     Indication: HYPERTENSION
     Dosage: 50, 1 D
  4. IMODIUM [Concomitant]
     Indication: DIARRHOEA
     Dosage: AS NEEDED
  5. LIPITOR [Suspect]
     Indication: BLOOD CHOLESTEROL INCREASED
     Dosage: UNK
     Route: 048
     Dates: start: 19980101
  6. LIPITOR [Suspect]
     Dosage: UNK
     Dates: start: 20080101
  7. LIPITOR [Suspect]
     Dosage: 80 MG, 1X/DAY
  8. ALLOPURINOL [Concomitant]
     Indication: GOUT
     Dosage: 300 MG, 1X/DAY
  9. CO-Q-10 [Concomitant]
     Dosage: UNK
  10. ADALAT [Concomitant]
     Indication: BLOOD PRESSURE INCREASED
     Dosage: 30 MG, 1X/DAY
  11. NEXIUM [Concomitant]
     Indication: HYPERCHLORHYDRIA
     Dosage: 20 MG, 1X/DAY
  12. GLUCOVANCE [Concomitant]
     Indication: DIABETES MELLITUS
     Dosage: 5/500, (2 BID)
  13. ZESTORETIC [Concomitant]
     Indication: BLOOD PRESSURE INCREASED
     Dosage: 20/12.5, 2X/DAY (1 BID)
  14. CELEXA [Concomitant]
     Indication: DEPRESSION
     Dosage: 20 MG, 1/2 DAILY

REACTIONS (9)
  - DRUG INTOLERANCE [None]
  - LOW DENSITY LIPOPROTEIN INCREASED [None]
  - MUSCULAR WEAKNESS [None]
  - BLOOD TRIGLYCERIDES INCREASED [None]
  - VASCULAR INSUFFICIENCY [None]
  - MYALGIA [None]
  - RENAL IMPAIRMENT [None]
  - ASTHENIA [None]
  - BLOOD CHOLESTEROL INCREASED [None]
